FAERS Safety Report 7905978-7 (Version None)
Quarter: 2011Q4

REPORT INFORMATION
  Report Type: 
  Country: None (occurrence: None)
  Receive Date: 20111108
  Receipt Date: 20111007
  Transmission Date: 20120403
  Serious: Yes (Other)
  Sender: FDA-Public Use
  Company Number: CIO11019946

PATIENT

DRUGS (1)
  1. NYQUIL, FORM/VERSION/FLAVOR UNKNOWN (ETHANOL UNKNOWN UNK, CHLORPHENAMI [Suspect]
     Dosage: , ORAL
     Route: 048

REACTIONS (1)
  - CONVULSION [None]
